FAERS Safety Report 14352281 (Version 3)
Quarter: 2018Q1

REPORT INFORMATION
  Report Type: Spontaneous
  Country: US (occurrence: US)
  Receive Date: 20180104
  Receipt Date: 20180222
  Transmission Date: 20180509
  Serious: No
  Sender: FDA-Public Use
  Company Number: US-PFIZER INC-2017550938

PATIENT
  Age: 94 Year
  Sex: Female

DRUGS (1)
  1. XELJANZ [Suspect]
     Active Substance: TOFACITINIB CITRATE
     Dosage: 5 MG, UNK
     Dates: start: 201706

REACTIONS (4)
  - Drug ineffective [Unknown]
  - Joint range of motion decreased [Recovering/Resolving]
  - Musculoskeletal pain [Recovering/Resolving]
  - Pain [Unknown]
